FAERS Safety Report 7347148-X (Version None)
Quarter: 2011Q1

REPORT INFORMATION
  Report Type: 
  Country: None (occurrence: None)
  Receive Date: 20110303
  Receipt Date: 20110225
  Transmission Date: 20110831
  Serious: Yes (Death)
  Sender: FDA-Public Use
  Company Number: UTC-005382

PATIENT
  Age: 77 Year
  Sex: Female
  Weight: 53.63 kg

DRUGS (3)
  1. REMODULIN [Suspect]
     Dates: start: 20100129
  2. COUMADIN [Concomitant]
  3. DIURETICS (DIURETICS) [Concomitant]

REACTIONS (1)
  - DEATH [None]
